FAERS Safety Report 6299360-9 (Version None)
Quarter: 2009Q3

REPORT INFORMATION
  Report Type: 
  Country: None (occurrence: None)
  Receive Date: 20090806
  Receipt Date: 20090723
  Transmission Date: 20100115
  Serious: Yes (Other)
  Sender: FDA-Public Use
  Company Number: ES-ROCHE-645755

PATIENT
  Age: 47 Year
  Sex: Female

DRUGS (2)
  1. PEGASYS [Suspect]
     Route: 058
     Dates: start: 20081014, end: 20081217
  2. REBETOL [Suspect]
     Route: 048
     Dates: start: 20081014, end: 20081217

REACTIONS (1)
  - LYMPHADENOPATHY [None]
